FAERS Safety Report 4602518-5 (Version None)
Quarter: 2005Q1

REPORT INFORMATION
  Report Type: 
  Country: None (occurrence: None)
  Receive Date: 20050307
  Receipt Date: 20050218
  Transmission Date: 20050727
  Serious: Yes (Other)
  Sender: FDA-Public Use
  Company Number: 2004120302

PATIENT
  Age: 82 Year
  Sex: Male
  Weight: 58.9676 kg

DRUGS (6)
  1. XALATAN [Suspect]
     Indication: GLAUCOMA
     Dosage: 1 DROP (1 DROP, 1 IN 1 D), OPHTHALMIC
     Route: 047
  2. BRIMONIDINE TARTRATE [Suspect]
     Indication: GLAUCOMA
     Dates: end: 20030101
  3. TIMOLOL MALEATE [Suspect]
     Indication: GLAUCOMA
  4. METFORMIN HCL [Concomitant]
  5. GLIPIZIDE [Concomitant]
  6. ACARBOSE (ACARBOSE) [Concomitant]

REACTIONS (5)
  - ABNORMAL SENSATION IN EYE [None]
  - BLEPHARITIS [None]
  - CATARACT OPERATION [None]
  - DRY EYE [None]
  - EYE IRRITATION [None]
